FAERS Safety Report 9994847 (Version 1)
Quarter: 2014Q1

REPORT INFORMATION
  Report Type: Spontaneous
  Country: CH (occurrence: None)
  Receive Date: 20140306
  Receipt Date: 20140306
  Transmission Date: 20141002
  Serious: Yes (Hospitalization)
  Sender: FDA-Public Use
  Company Number: 20140097

PATIENT
  Age: 44 Year
  Sex: Female
  Weight: 81 kg

DRUGS (1)
  1. VENOFER [Suspect]
     Indication: ANAEMIA
     Dosage: 1 IN 1 TOTAL
     Route: 041
     Dates: start: 20131025, end: 20131025

REACTIONS (6)
  - Presyncope [None]
  - Hypotension [None]
  - Nausea [None]
  - Dizziness [None]
  - Local swelling [None]
  - Local swelling [None]
